FAERS Safety Report 11390180 (Version 1)
Quarter: 2015Q3

REPORT INFORMATION
  Report Type: Other
  Country: TR (occurrence: TR)
  Receive Date: 20150818
  Receipt Date: 20150818
  Transmission Date: 20151125
  Serious: Yes (Life-Threatening, Hospitalization)
  Sender: FDA-Public Use
  Company Number: TR-ORCHID HEALTHCARE-1041168

PATIENT
  Age: 43 Year
  Sex: Male

DRUGS (1)
  1. AMLODIPINE BESYLATE. [Suspect]
     Active Substance: AMLODIPINE BESYLATE
     Route: 065

REACTIONS (8)
  - Pulmonary oedema [Unknown]
  - Sinus tachycardia [Unknown]
  - Oliguria [Unknown]
  - Shock [Unknown]
  - Renal function test abnormal [Unknown]
  - Hypoxia [Unknown]
  - Suicide attempt [Unknown]
  - Overdose [Unknown]
